FAERS Safety Report 10171558 (Version 1)
Quarter: 2014Q2

REPORT INFORMATION
  Report Type: Spontaneous
  Country: ES (occurrence: None)
  Receive Date: 20140512
  Receipt Date: 20140512
  Transmission Date: 20141212
  Serious: Yes (Hospitalization)
  Sender: FDA-Public Use
  Company Number: ES-DEXPHARM-20140220

PATIENT
  Age: 64 Year
  Sex: Male

DRUGS (1)
  1. OMEPRAZOLE [Suspect]
     Indication: GASTROOESOPHAGEAL REFLUX DISEASE
     Dosage: 20 MG MILLIGRAM(S), 1 DAYS, 10 YEAR

REACTIONS (6)
  - Hypocalcaemia [None]
  - Hypomagnesaemia [None]
  - Hypoparathyroidism [None]
  - Asthenia [None]
  - Fatigue [None]
  - Muscular weakness [None]
